FAERS Safety Report 5842873-1 (Version None)
Quarter: 2008Q3

REPORT INFORMATION
  Report Type: 
  Country: None (occurrence: None)
  Receive Date: 20080813
  Receipt Date: 20080808
  Transmission Date: 20090109
  Serious: Yes (Death)
  Sender: FDA-Public Use
  Company Number: US-CELGENEUS-163-21880-08070814

PATIENT
  Sex: Female

DRUGS (2)
  1. REVLIMID [Suspect]
     Indication: PARAPROTEINAEMIA
     Route: 048
     Dates: start: 20080622, end: 20080701
  2. REVLIMID [Suspect]
     Indication: AMYLOIDOSIS

REACTIONS (1)
  - CARDIAC ARREST [None]
